FAERS Safety Report 5288107-0 (Version None)
Quarter: 2007Q2

REPORT INFORMATION
  Report Type: 
  Country: None (occurrence: None)
  Receive Date: 20070402
  Receipt Date: 20070402
  Transmission Date: 20071010
  Serious: No
  Sender: FDA-Public Use
  Company Number: None

PATIENT
  Age: 56 Year
  Sex: Female
  Weight: 77.1115 kg

DRUGS (2)
  1. VERSED [Suspect]
     Indication: TOOTH EXTRACTION
     Dates: start: 20070330, end: 20070330
  2. ANTIEMETIC UNK. [Suspect]

REACTIONS (9)
  - ANXIETY [None]
  - DISSOCIATION [None]
  - DYSACUSIS [None]
  - FEAR [None]
  - FEELING ABNORMAL [None]
  - MENTAL DISORDER [None]
  - PANIC REACTION [None]
  - TINNITUS [None]
  - VISUAL DISTURBANCE [None]
